FAERS Safety Report 14690102 (Version 1)
Quarter: 2018Q1

REPORT INFORMATION
  Report Type: Report from Study
  Country: None (occurrence: BR)
  Receive Date: 20180328
  Receipt Date: 20180328
  Transmission Date: 20180509
  Serious: Yes (Other)
  Sender: FDA-Public Use
  Company Number: BR-ABBVIE-18K-020-2298830-00

PATIENT
  Age: 53 Year
  Sex: Female
  Weight: 73 kg

DRUGS (13)
  1. QUETIAPINE. [Concomitant]
     Active Substance: QUETIAPINE
     Indication: BIPOLAR DISORDER
  2. NATIFA PRO [Concomitant]
     Indication: MENOPAUSE
  3. DRAMIN B6 [Concomitant]
     Indication: BIPOLAR DISORDER
  4. ATENOLOL. [Concomitant]
     Active Substance: ATENOLOL
     Indication: HYPERTENSION
  5. HUMIRA [Suspect]
     Active Substance: ADALIMUMAB
     Indication: ANKYLOSING SPONDYLITIS
     Route: 058
     Dates: start: 20170522
  6. CEFALIUM [Concomitant]
     Indication: HEADACHE
     Dosage: ACTIVE INGREDIENTS:DIHYDROERGOTAMINE MESYLATE,PARACETAMOL,CAFFEINE,METOCLOPRAMIDE HCL
  7. PANTOPRAZOLE [Concomitant]
     Active Substance: PANTOPRAZOLE
     Indication: GASTRITIS
  8. DOMPERIDONE [Concomitant]
     Active Substance: DOMPERIDONE
     Indication: GASTROOESOPHAGEAL REFLUX DISEASE
  9. SULFA [Suspect]
     Active Substance: UNSPECIFIED INGREDIENT
     Indication: PRODUCT USED FOR UNKNOWN INDICATION
     Route: 065
  10. DULOXETINE. [Concomitant]
     Active Substance: DULOXETINE
     Indication: BIPOLAR DISORDER
  11. PANTOPRAZOLE [Concomitant]
     Active Substance: PANTOPRAZOLE
     Indication: GASTROOESOPHAGEAL REFLUX DISEASE
  12. VOLTAREN [Concomitant]
     Active Substance: DICLOFENAC SODIUM
     Indication: BIPOLAR DISORDER
  13. DOMPERIDONE [Concomitant]
     Active Substance: DOMPERIDONE
     Indication: GASTRITIS

REACTIONS (17)
  - Uveitis [Recovered/Resolved]
  - Asthenia [Recovered/Resolved]
  - Gastritis [Recovered/Resolved]
  - Proctitis [Recovered/Resolved]
  - Gastrooesophageal reflux disease [Recovered/Resolved]
  - Syncope [Recovered/Resolved]
  - Parosmia [Recovering/Resolving]
  - Chromaturia [Recovered/Resolved]
  - Paraesthesia oral [Recovered/Resolved]
  - Weight decreased [Not Recovered/Not Resolved]
  - Blood pressure decreased [Recovered/Resolved]
  - Dysgeusia [Recovering/Resolving]
  - Pain in extremity [Recovered/Resolved]
  - Headache [Recovering/Resolving]
  - Urinary tract infection [Recovered/Resolved]
  - Pain [Recovered/Resolved]
  - Bipolar disorder [Not Recovered/Not Resolved]

NARRATIVE: CASE EVENT DATE: 201707
